FAERS Safety Report 24004394 (Version 1)
Quarter: 2024Q2

REPORT INFORMATION
  Report Type: Spontaneous
  Country: PL (occurrence: PL)
  Receive Date: 20240624
  Receipt Date: 20240624
  Transmission Date: 20240716
  Serious: Yes (Other)
  Sender: FDA-Public Use
  Company Number: PL-002147023-NVSC2024PL129992

PATIENT
  Age: 69 Year
  Sex: Male

DRUGS (2)
  1. LUTATHERA [Suspect]
     Active Substance: LUTETIUM OXODOTREOTIDE LU-177
     Indication: Product used for unknown indication
     Dosage: UNK 1ST APPLICATION
     Route: 065
     Dates: start: 20240118
  2. LUTATHERA [Suspect]
     Active Substance: LUTETIUM OXODOTREOTIDE LU-177
     Dosage: UNK 2ND APPLICATION
     Route: 065
     Dates: start: 20240403

REACTIONS (2)
  - Lymphorrhoea [Unknown]
  - Disease progression [Unknown]
